FAERS Safety Report 25932095 (Version 1)
Quarter: 2025Q4

REPORT INFORMATION
  Report Type: Spontaneous
  Country: US (occurrence: US)
  Receive Date: 20251016
  Receipt Date: 20251016
  Transmission Date: 20260118
  Serious: Yes (Other)
  Sender: PURDUE
  Company Number: US-PURDUE-USA-2025-0321413

PATIENT
  Age: 35 Year
  Sex: Male

DRUGS (1)
  1. HYDROCODONE BITARTRATE [Suspect]
     Active Substance: HYDROCODONE BITARTRATE
     Indication: Back pain
     Dosage: 7.5-325 HYDROCODONE EVERY 4 TO 6 HOURS AS NEEDED
     Route: 065

REACTIONS (2)
  - Suicidal ideation [Recovered/Resolved]
  - Acute psychosis [Recovered/Resolved]
